FAERS Safety Report 6126250-4 (Version None)
Quarter: 2009Q1

REPORT INFORMATION
  Report Type: 
  Country: None (occurrence: None)
  Receive Date: 20090320
  Receipt Date: 20090311
  Transmission Date: 20090719
  Serious: Yes (Hospitalization)
  Sender: FDA-Public Use
  Company Number: DE-ELI_LILLY_AND_COMPANY-DE200903003330

PATIENT
  Age: 52 Year
  Sex: Female

DRUGS (4)
  1. CYMBALTA [Suspect]
     Indication: DEPRESSION
     Dosage: 60 MG, UNKNOWN
     Route: 048
     Dates: start: 20080601, end: 20081028
  2. CYMBALTA [Suspect]
     Dosage: 90 MG, UNKNOWN
     Route: 048
     Dates: start: 20081029, end: 20081105
  3. CYMBALTA [Suspect]
     Dosage: 120 MG, UNKNOWN
     Route: 048
     Dates: start: 20081106, end: 20081212
  4. FAUSTAN [Concomitant]
     Dosage: 5 MG, UNKNOWN
     Route: 048
     Dates: start: 20081001, end: 20081203

REACTIONS (2)
  - ACCOMMODATION DISORDER [None]
  - MENTAL DISORDER [None]
